FAERS Safety Report 9037871 (Version 1)
Quarter: 2013Q1

REPORT INFORMATION
  Report Type: Spontaneous
  Country: CA (occurrence: CA)
  Receive Date: 20130129
  Receipt Date: 20130129
  Transmission Date: 20140127
  Serious: Yes (Other)
  Sender: FDA-Public Use
  Company Number: CA-ELI_LILLY_AND_COMPANY-CA201301006221

PATIENT
  Sex: Female

DRUGS (4)
  1. CYMBALTA [Suspect]
     Dosage: 60 MG, UNKNOWN
  2. AMIODARONE [Concomitant]
     Dosage: 200 MG, UNKNOWN
  3. LEVAQUIN [Concomitant]
     Dosage: UNK, UNKNOWN
  4. DIFLUCAN [Concomitant]
     Dosage: UNK, UNKNOWN

REACTIONS (1)
  - Electrocardiogram QT prolonged [Recovered/Resolved]
